FAERS Safety Report 9897262 (Version 1)
Quarter: 2014Q1

REPORT INFORMATION
  Report Type: Other
  Country: IT (occurrence: IT)
  Receive Date: 20140214
  Receipt Date: 20140214
  Transmission Date: 20141002
  Serious: Yes (Hospitalization)
  Sender: FDA-Public Use
  Company Number: IT-SUN PHARMACEUTICAL INDUSTRIES LTD-2014SUN00304

PATIENT
  Age: 44 Year
  Sex: Male

DRUGS (3)
  1. XELODA [Concomitant]
     Dosage: 3800 MG, UNK
     Route: 048
     Dates: start: 20131030, end: 20131113
  2. XELODA [Concomitant]
     Dosage: UNK
     Dates: start: 20131030, end: 20131113
  3. OXALIPLATINO SUN 5 MG/ML, CONCENTRATO PER SOLUZIONE PER INFUSIONE [Suspect]
     Indication: RECTAL CANCER METASTATIC
     Dosage: 200 MG, CYCLIC
     Route: 042
     Dates: start: 20131029, end: 20131029

REACTIONS (3)
  - Colitis [Recovered/Resolved]
  - Diarrhoea [Recovered/Resolved]
  - Abdominal pain [Recovered/Resolved]
